FAERS Safety Report 23270123 (Version 1)
Quarter: 2023Q4

REPORT INFORMATION
  Report Type: Spontaneous
  Country: US (occurrence: US)
  Receive Date: 20231207
  Receipt Date: 20231207
  Transmission Date: 20240109
  Serious: Yes (Death)
  Sender: FDA-Public Use
  Company Number: US-002147023-NVSC2023US259739

PATIENT
  Age: 47 Year
  Sex: Female

DRUGS (6)
  1. EVEROLIMUS [Suspect]
     Active Substance: EVEROLIMUS
     Indication: Renal cancer
     Dosage: UNK
     Route: 065
  2. EVEROLIMUS [Suspect]
     Active Substance: EVEROLIMUS
     Indication: Metastases to lung
  3. LENVIMA [Suspect]
     Active Substance: LENVATINIB
     Indication: Renal cancer
     Dosage: UNK, QD
     Route: 065
  4. LENVIMA [Suspect]
     Active Substance: LENVATINIB
     Indication: Metastases to lung
  5. CABOMETYX [Suspect]
     Active Substance: CABOZANTINIB S-MALATE
     Indication: Renal cancer
     Dosage: 40 MG, QD
     Route: 048
     Dates: start: 202306
  6. CABOMETYX [Suspect]
     Active Substance: CABOZANTINIB S-MALATE
     Indication: Metastases to lung

REACTIONS (2)
  - Renal cancer [Fatal]
  - Malignant neoplasm progression [Fatal]
